FAERS Safety Report 25547765 (Version 1)
Quarter: 2025Q3

REPORT INFORMATION
  Report Type: Report from Study
  Country: US (occurrence: US)
  Receive Date: 20250714
  Receipt Date: 20250714
  Transmission Date: 20251020
  Serious: Yes (Other)
  Sender: ABBVIE
  Company Number: US-ABBVIE-6246187

PATIENT
  Sex: Female

DRUGS (1)
  1. VENCLEXTA [Suspect]
     Active Substance: VENETOCLAX
     Indication: Chronic lymphocytic leukaemia
     Dosage: 100 MG FOUR TIMES A DAY
     Route: 048
     Dates: start: 202410

REACTIONS (7)
  - Basal cell carcinoma [Unknown]
  - Rash [Unknown]
  - Arthropod bite [Not Recovered/Not Resolved]
  - Pruritus [Unknown]
  - Infected bite [Unknown]
  - Red blood cell count decreased [Unknown]
  - Lymphocyte count decreased [Unknown]
